FAERS Safety Report 4606367-3 (Version None)
Quarter: 2005Q2

REPORT INFORMATION
  Report Type: 
  Country: None (occurrence: None)
  Receive Date: 20050223
  Receipt Date: 20041110
  Transmission Date: 20051028
  Serious: Yes (Life-Threatening, Hospitalization, Other)
  Sender: FDA-Public Use
  Company Number: WAES 0411USA02108

PATIENT
  Age: 63 Year
  Sex: Female
  Weight: 86.1834 kg

DRUGS (11)
  1. ZOCOR [Suspect]
     Indication: CORONARY ARTERY DISEASE
     Dosage: 40 MG/DAILY/PO
     Route: 048
     Dates: start: 20020801, end: 20040801
  2. ZOCOR [Suspect]
     Indication: CORONARY ARTERY DISEASE
     Dosage: 80 MG/DAILY/PO
     Route: 048
     Dates: start: 20040802, end: 20041102
  3. ACCUPRIL [Concomitant]
  4. HYDRODIURIL [Concomitant]
  5. LEXAPRO [Concomitant]
  6. TIAZAC [Concomitant]
  7. TOPROL-XL [Concomitant]
  8. ZETIA [Concomitant]
  9. ASPIRIN [Concomitant]
  10. IBUPROFEN [Concomitant]
  11. VITAMIN  B (UNSPECIFIED) [Concomitant]

REACTIONS (1)
  - RHABDOMYOLYSIS [None]
